FAERS Safety Report 8910022 (Version 1)
Quarter: 2012Q4

REPORT INFORMATION
  Report Type: Report from Study
  Country: US (occurrence: US)
  Receive Date: 20121115
  Receipt Date: 20121115
  Transmission Date: 20130627
  Serious: Yes (Hospitalization)
  Sender: FDA-Public Use
  Company Number: US-ABBOTT-12P-163-1006718-00

PATIENT
  Age: 30 Year
  Sex: Male

DRUGS (5)
  1. HUMIRA [Suspect]
     Indication: PSORIASIS
     Dates: start: 201210
  2. LITHIUM [Suspect]
  3. OXYCODONE [Suspect]
  4. AMBIEN [Suspect]
  5. KLONIPIN [Suspect]

REACTIONS (2)
  - Suicide attempt [Unknown]
  - Overdose [Unknown]
